FAERS Safety Report 10311956 (Version 1)
Quarter: 2014Q3

REPORT INFORMATION
  Report Type: Spontaneous
  Country: US (occurrence: None)
  Receive Date: 20140715
  Receipt Date: 20140715
  Transmission Date: 20150326
  Serious: No
  Sender: FDA-Public Use
  Company Number: CC14-0255

PATIENT
  Sex: Female

DRUGS (1)
  1. KETOCONAZOLE 2%, SHAMPOO [Suspect]
     Active Substance: KETOCONAZOLE
     Indication: PRURITUS
     Dosage: UNKNOWN

REACTIONS (3)
  - Product odour abnormal [None]
  - Pruritus [None]
  - Condition aggravated [None]
